FAERS Safety Report 24309281 (Version 1)
Quarter: 2024Q3

REPORT INFORMATION
  Report Type: Report from Study
  Country: US (occurrence: None)
  Receive Date: 20240911
  Receipt Date: 20240911
  Transmission Date: 20241016
  Serious: Yes (Other)
  Sender: ASTRAZENECA
  Company Number: 2024A203055

PATIENT
  Sex: Female

DRUGS (1)
  1. TRUQAP [Suspect]
     Active Substance: CAPIVASERTIB
     Route: 048

REACTIONS (6)
  - Myocardial injury [Unknown]
  - Muscular weakness [Unknown]
  - Limb discomfort [Unknown]
  - Fatigue [Unknown]
  - Taste disorder [Unknown]
  - Decreased appetite [Unknown]
